FAERS Safety Report 6823705-1 (Version None)
Quarter: 2010Q3

REPORT INFORMATION
  Report Type: 
  Country: None (occurrence: None)
  Receive Date: 20100708
  Receipt Date: 20060821
  Transmission Date: 20110219
  Serious: No
  Sender: FDA-Public Use
  Company Number: US-PFIZER INC-2006103029

PATIENT
  Sex: Female
  Weight: 63.5 kg

DRUGS (7)
  1. CHANTIX [Suspect]
     Indication: SMOKING CESSATION THERAPY
     Dates: start: 20060813
  2. VYTORIN [Concomitant]
     Indication: BLOOD CHOLESTEROL
  3. ESTRADIOL [Concomitant]
  4. HERBAL PREPARATION [Concomitant]
  5. GINSENG [Concomitant]
  6. CENTRUM [Concomitant]
  7. MULTIVITAMIN [Concomitant]

REACTIONS (3)
  - FLATULENCE [None]
  - NAUSEA [None]
  - POLLAKIURIA [None]
